FAERS Safety Report 13797883 (Version 1)
Quarter: 2017Q3

REPORT INFORMATION
  Report Type: Spontaneous
  Country: US (occurrence: US)
  Receive Date: 20170727
  Receipt Date: 20170727
  Transmission Date: 20171127
  Serious: No
  Sender: FDA-Public Use
  Company Number: US-TEVA-740573ACC

PATIENT
  Sex: Female
  Weight: 61.69 kg

DRUGS (11)
  1. METOPROLOL ER SUCCINATE [Concomitant]
     Active Substance: METOPROLOL SUCCINATE
     Dosage: 1.5 DOSAGE FORMS DAILY;
     Route: 048
     Dates: start: 2001
  2. LEVOTHYROXINE. [Concomitant]
     Active Substance: LEVOTHYROXINE
     Indication: THYROID DISORDER
     Dosage: 100 MILLIGRAM DAILY;
     Route: 048
     Dates: start: 2001
  3. GENOTROPIN PEN 12 [Concomitant]
     Indication: HORMONE THERAPY
     Dosage: .4 MILLIGRAM DAILY;
     Route: 058
  4. TEMAZEPAM. [Concomitant]
     Active Substance: TEMAZEPAM
     Indication: SLEEP DISORDER
     Dosage: 30 MILLIGRAM DAILY;
     Route: 048
     Dates: start: 2001
  5. GENOTROPIN [Concomitant]
     Active Substance: SOMATROPIN
     Indication: HORMONE THERAPY
     Dosage: .4 MILLIGRAM DAILY;
     Route: 058
  6. NEXIUM [Concomitant]
     Active Substance: ESOMEPRAZOLE MAGNESIUM
     Indication: STRESS ULCER
     Dosage: 40 MILLIGRAM DAILY;
     Route: 048
     Dates: start: 2001
  7. FENOFIBRATE. [Concomitant]
     Active Substance: FENOFIBRATE
     Dosage: 145 MILLIGRAM DAILY;
     Route: 048
     Dates: start: 2001
  8. HYDROCORTISONE. [Concomitant]
     Active Substance: HYDROCORTISONE
     Indication: HORMONE THERAPY
     Dosage: 20 MILLIGRAM DAILY;
     Route: 048
     Dates: start: 2001
  9. ESCTALOPRAM [Concomitant]
     Indication: NERVOUSNESS
     Dosage: 10 MILLIGRAM DAILY;
     Route: 048
     Dates: start: 2001
  10. DESMOPRESSIN [Suspect]
     Active Substance: DESMOPRESSIN
     Indication: DIABETES INSIPIDUS
     Dosage: 1 MILLIGRAM DAILY;
     Route: 048
     Dates: start: 2001
  11. ESCTALOPRAM [Concomitant]
     Indication: ANXIETY

REACTIONS (2)
  - Dehydration [Unknown]
  - Pollakiuria [Unknown]
